FAERS Safety Report 9713670 (Version 1)
Quarter: 2013Q4

REPORT INFORMATION
  Report Type: Spontaneous
  Country: US (occurrence: US)
  Receive Date: 20131126
  Receipt Date: 20131126
  Transmission Date: 20140711
  Serious: Yes (Other)
  Sender: FDA-Public Use
  Company Number: US-ELI_LILLY_AND_COMPANY-US201311005404

PATIENT
  Age: 57 Year
  Sex: Female

DRUGS (3)
  1. ALIMTA [Suspect]
     Indication: LUNG NEOPLASM MALIGNANT
     Dosage: 740 MG, EVERY 21 DAYS
     Route: 065
  2. CARBOPLATIN [Suspect]
     Indication: LUNG NEOPLASM MALIGNANT
  3. AVASTIN [Concomitant]
     Indication: LUNG NEOPLASM MALIGNANT

REACTIONS (4)
  - Loss of consciousness [Unknown]
  - Presyncope [Unknown]
  - Haemorrhage [Unknown]
  - Off label use [Unknown]
